FAERS Safety Report 11740154 (Version 4)
Quarter: 2016Q3

REPORT INFORMATION
  Report Type: Report from Study
  Country: JP (occurrence: JP)
  Receive Date: 20151113
  Receipt Date: 20160707
  Transmission Date: 20161109
  Serious: Yes (Death, Hospitalization, Other)
  Sender: FDA-Public Use
  Company Number: JP-BRISTOL-MYERS SQUIBB COMPANY-BMS-2015-065692

PATIENT
  Age: 65 Year
  Sex: Male

DRUGS (10)
  1. OLMETEC [Concomitant]
     Active Substance: OLMESARTAN MEDOXOMIL
     Indication: PRODUCT USED FOR UNKNOWN INDICATION
     Route: 065
  2. MAGLAX [Concomitant]
     Active Substance: MAGNESIUM OXIDE
     Indication: PRODUCT USED FOR UNKNOWN INDICATION
     Route: 065
  3. NIVOLUMAB [Suspect]
     Active Substance: NIVOLUMAB
     Dosage: UNK
     Route: 041
     Dates: start: 20151015, end: 20151015
  4. LANSOPRAZOLE. [Concomitant]
     Active Substance: LANSOPRAZOLE
     Indication: PRODUCT USED FOR UNKNOWN INDICATION
     Dosage: UNK, QD
     Route: 065
  5. NIVOLUMAB [Suspect]
     Active Substance: NIVOLUMAB
     Dosage: 138 MG, UNK
     Route: 041
     Dates: start: 20150924, end: 20150924
  6. NIVOLUMAB [Suspect]
     Active Substance: NIVOLUMAB
     Indication: MALIGNANT MELANOMA
     Dosage: 138 MG, QD
     Route: 041
     Dates: start: 20150903, end: 20150903
  7. PLAVIX [Concomitant]
     Active Substance: CLOPIDOGREL BISULFATE
     Indication: PRODUCT USED FOR UNKNOWN INDICATION
     Route: 065
  8. AMLODIPINE [Concomitant]
     Active Substance: AMLODIPINE BESYLATE
     Indication: PRODUCT USED FOR UNKNOWN INDICATION
     Dosage: UNK, QD
     Route: 065
  9. ATORVASTATIN [Concomitant]
     Active Substance: ATORVASTATIN
     Indication: PRODUCT USED FOR UNKNOWN INDICATION
     Route: 065
  10. DAIKENCHUTO [Concomitant]
     Active Substance: HERBALS
     Indication: PRODUCT USED FOR UNKNOWN INDICATION
     Route: 065

REACTIONS (22)
  - Malignant neoplasm progression [Fatal]
  - Hyperuricaemia [Not Recovered/Not Resolved]
  - Hypocalcaemia [Recovered/Resolved]
  - Haemorrhage [Not Recovered/Not Resolved]
  - Rash [Recovered/Resolved]
  - Lymphocyte count decreased [Not Recovered/Not Resolved]
  - Blood urea increased [Not Recovered/Not Resolved]
  - Nausea [Not Recovered/Not Resolved]
  - Productive cough [Recovered/Resolved]
  - Hypoalbuminaemia [Not Recovered/Not Resolved]
  - Blood bilirubin increased [Not Recovered/Not Resolved]
  - Cardiac failure [Unknown]
  - Hyperkalaemia [Not Recovered/Not Resolved]
  - Interstitial lung disease [Recovered/Resolved]
  - Decreased appetite [Not Recovered/Not Resolved]
  - Abdominal distension [Not Recovered/Not Resolved]
  - Prothrombin time prolonged [Not Recovered/Not Resolved]
  - Cough [Unknown]
  - Drug eruption [Unknown]
  - White blood cell count increased [Not Recovered/Not Resolved]
  - Tri-iodothyronine free decreased [Unknown]
  - Neutrophil count increased [Unknown]

NARRATIVE: CASE EVENT DATE: 20150904
